FAERS Safety Report 15218474 (Version 5)
Quarter: 2018Q4

REPORT INFORMATION
  Report Type: Spontaneous
  Country: US (occurrence: US)
  Receive Date: 20180730
  Receipt Date: 20181024
  Transmission Date: 20190204
  Serious: Yes (Other)
  Sender: FDA-Public Use
  Company Number: US-009507513-1807USA012543

PATIENT
  Age: 47 Year
  Sex: Female
  Weight: 99.77 kg

DRUGS (1)
  1. NUVARING [Suspect]
     Active Substance: ETHINYL ESTRADIOL\ETONOGESTREL
     Indication: CONTRACEPTION
     Dosage: 1 DF, QM (ONE RING, USE EVERY THREE WEEKS, WITH ONE WEEK RING FREE)
     Route: 067
     Dates: start: 2001, end: 2007

REACTIONS (10)
  - Muscular weakness [Not Recovered/Not Resolved]
  - Liver disorder [Unknown]
  - Hysterectomy [Unknown]
  - Mastectomy [Unknown]
  - Gallbladder disorder [Unknown]
  - Idiopathic intracranial hypertension [Unknown]
  - Memory impairment [Not Recovered/Not Resolved]
  - Breast reconstruction [Unknown]
  - Myocardial infarction [Unknown]
  - Hepatic mass [Not Recovered/Not Resolved]

NARRATIVE: CASE EVENT DATE: 2016
